FAERS Safety Report 7068082-9 (Version None)
Quarter: 2010Q4

REPORT INFORMATION
  Report Type: 
  Country: None (occurrence: None)
  Receive Date: 20101028
  Receipt Date: 20101013
  Transmission Date: 20110411
  Serious: Yes (Other)
  Sender: FDA-Public Use
  Company Number: PHHY2010US69118

PATIENT
  Sex: Male

DRUGS (5)
  1. DIOVAN [Suspect]
  2. HYDRALAZINE [Suspect]
  3. CARVEDIL [Suspect]
     Dosage: UNK
  4. CARVEDIL [Suspect]
     Dosage: 25 MG
  5. SIMVASTATIN [Suspect]

REACTIONS (6)
  - CEREBROVASCULAR ACCIDENT [None]
  - DYSARTHRIA [None]
  - ERECTILE DYSFUNCTION [None]
  - HEADACHE [None]
  - HYPOTENSION [None]
  - VISUAL IMPAIRMENT [None]
